FAERS Safety Report 8012669-3 (Version None)
Quarter: 2011Q4

REPORT INFORMATION
  Report Type: 
  Country: None (occurrence: None)
  Receive Date: 20111223
  Receipt Date: 20111223
  Transmission Date: 20120403
  Serious: Yes (Disabling)
  Sender: FDA-Public Use
  Company Number: None

PATIENT
  Age: 48 Year
  Sex: Male
  Weight: 84.369 kg

DRUGS (1)
  1. BEVACIZUMAB (AVASTIN) 1.25 25MG [Suspect]
     Indication: HAEMORRHAGE
     Dosage: ONCE INTRAVITREAL
     Dates: start: 20100210

REACTIONS (2)
  - OFF LABEL USE [None]
  - BLINDNESS UNILATERAL [None]
